FAERS Safety Report 6306177-5 (Version None)
Quarter: 2009Q3

REPORT INFORMATION
  Report Type: 
  Country: None (occurrence: None)
  Receive Date: 20090812
  Receipt Date: 20090807
  Transmission Date: 20100115
  Serious: Yes (Other)
  Sender: FDA-Public Use
  Company Number: CN-ROCHE-648826

PATIENT
  Age: 65 Year
  Sex: Male
  Weight: 50 kg

DRUGS (1)
  1. XELODA [Suspect]
     Indication: GASTRIC CANCER
     Dosage: STOP DATE REPORTED AS  IN APRIL OR MAY 2009.
     Route: 048
     Dates: start: 20081201, end: 20090501

REACTIONS (4)
  - ASCITES [None]
  - METASTASES TO LIVER [None]
  - METASTASES TO PANCREAS [None]
  - METASTASES TO SMALL INTESTINE [None]
